FAERS Safety Report 8479086-3 (Version None)
Quarter: 2012Q2

REPORT INFORMATION
  Report Type: 
  Country: None (occurrence: None)
  Receive Date: 20120629
  Receipt Date: 20120524
  Transmission Date: 20120825
  Serious: Yes (Other)
  Sender: FDA-Public Use
  Company Number: DZ-ROCHE-1082272

PATIENT
  Age: 40 Year
  Sex: Female

DRUGS (2)
  1. AVASTIN [Suspect]
     Indication: BREAST CANCER
     Dosage: LAST DOSE RECEIVED ON 09/MAY/2012
     Route: 042
     Dates: start: 20120301
  2. PACLITAXEL [Suspect]
     Indication: BREAST CANCER
     Dosage: LAST DOSE RECEIVED ON 09/MAY/2012
     Route: 042
     Dates: start: 20120301

REACTIONS (3)
  - GINGIVAL BLEEDING [None]
  - APLASIA [None]
  - EPISTAXIS [None]
